FAERS Safety Report 5725763-4 (Version None)
Quarter: 2008Q2

REPORT INFORMATION
  Report Type: 
  Country: None (occurrence: None)
  Receive Date: 20080429
  Receipt Date: 20080415
  Transmission Date: 20081010
  Serious: Yes (Death)
  Sender: FDA-Public Use
  Company Number: 2008BI002339

PATIENT
  Age: 48 Year
  Sex: Female

DRUGS (1)
  1. TYSABRI [Suspect]
     Indication: MULTIPLE SCLEROSIS
     Dosage: 300 MG; QM; IV
     Route: 042
     Dates: start: 20071105, end: 20071203

REACTIONS (12)
  - ARTERIOSCLEROSIS [None]
  - BALANCE DISORDER [None]
  - CEREBELLAR ATROPHY [None]
  - DRUG TOXICITY [None]
  - HEADACHE [None]
  - HEPATIC STEATOSIS [None]
  - HEPATOMEGALY [None]
  - HYPERTENSIVE HEART DISEASE [None]
  - OEDEMA [None]
  - PULMONARY CONGESTION [None]
  - RENAL HYPERTROPHY [None]
  - UNRESPONSIVE TO STIMULI [None]
